FAERS Safety Report 23135305 (Version 1)
Quarter: 2023Q4

REPORT INFORMATION
  Report Type: Spontaneous
  Country: ES (occurrence: None)
  Receive Date: 20231101
  Receipt Date: 20231101
  Transmission Date: 20240109
  Serious: Yes (Other)
  Sender: FDA-Public Use
  Company Number: 2023A240189

PATIENT
  Age: 40 Year
  Sex: Female

DRUGS (4)
  1. FASLODEX [Suspect]
     Active Substance: FULVESTRANT
     Dosage: 1ST CYCLE 19JUN2018 // 66TH 04SEP2023).
     Dates: start: 20180619, end: 20230904
  2. GOSERELIN [Suspect]
     Active Substance: GOSERELIN
     Dosage: 1ST CYCLE 19JUN2018 // 66TH 04SEP2023).
     Dates: start: 20180619, end: 20230904
  3. PALBOCICLIB [Suspect]
     Active Substance: PALBOCICLIB
     Dosage: 1ST CYCLE 19JUN2018 // 66TH 04SEP2023).
     Dates: start: 20180619, end: 20230904
  4. ZOMETA [Suspect]
     Active Substance: ZOLEDRONIC ACID
     Dosage: UNK, EVERY 3 MONTHS (QUARTERLY)

REACTIONS (3)
  - Neutropenia [Unknown]
  - Tumour marker increased [Unknown]
  - Malignant neoplasm progression [Unknown]

NARRATIVE: CASE EVENT DATE: 20230901
